FAERS Safety Report 7089137-9 (Version None)
Quarter: 2010Q4

REPORT INFORMATION
  Report Type: 
  Country: None (occurrence: None)
  Receive Date: 20101108
  Receipt Date: 20101101
  Transmission Date: 20110411
  Serious: Yes (Hospitalization)
  Sender: FDA-Public Use
  Company Number: US-B.I. PHARMACEUTICALS,INC./RIDGEFIELD-2010-BP-12198BP

PATIENT
  Sex: Male

DRUGS (6)
  1. MICARDIS HCT [Suspect]
     Indication: HYPERTENSION
     Route: 048
     Dates: start: 20040101, end: 20100701
  2. MICARDIS HCT [Suspect]
     Route: 048
     Dates: start: 20100701, end: 20100701
  3. MICARDIS HCT [Suspect]
     Route: 048
     Dates: start: 20101001, end: 20101001
  4. MICARDIS HCT [Suspect]
     Route: 048
     Dates: start: 20101001
  5. ARTHROTEC [Concomitant]
     Indication: ARTHRITIS
  6. LIPITOR [Concomitant]
     Indication: BLOOD CHOLESTEROL INCREASED

REACTIONS (5)
  - ARTHRITIS [None]
  - ERECTILE DYSFUNCTION [None]
  - HYPERTENSION [None]
  - SOMNOLENCE [None]
  - TREMOR [None]
